FAERS Safety Report 14182934 (Version 4)
Quarter: 2018Q1

REPORT INFORMATION
  Report Type: Report from Study
  Country: US (occurrence: US)
  Receive Date: 20171113
  Receipt Date: 20180214
  Transmission Date: 20180508
  Serious: Yes (Death, Hospitalization)
  Sender: FDA-Public Use
  Company Number: US-BAYER-2017-211480

PATIENT
  Age: 69 Year
  Sex: Male

DRUGS (1)
  1. STIVARGA [Suspect]
     Active Substance: REGORAFENIB
     Indication: COLON CANCER
     Dosage: 120 MG, DAILY
     Route: 048
     Dates: start: 20170802

REACTIONS (4)
  - Dehydration [None]
  - Pneumonia [None]
  - Off label use [None]
  - Refractory cancer [Fatal]

NARRATIVE: CASE EVENT DATE: 201710
